FAERS Safety Report 7156713-4 (Version None)
Quarter: 2010Q4

REPORT INFORMATION
  Report Type: 
  Country: None (occurrence: None)
  Receive Date: 20101214
  Receipt Date: 20091202
  Transmission Date: 20110411
  Serious: No
  Sender: FDA-Public Use
  Company Number: US-ASTRAZENECA-2009SE29857

PATIENT
  Age: 62 Year
  Sex: Female
  Weight: 68.9 kg

DRUGS (5)
  1. CRESTOR [Suspect]
     Indication: BLOOD CHOLESTEROL INCREASED
     Route: 048
     Dates: end: 20070101
  2. CRESTOR [Suspect]
     Route: 048
  3. ASPIRIN [Concomitant]
  4. ANTACIDS [Concomitant]
  5. ANTIHYPERTENSIVES [Concomitant]

REACTIONS (2)
  - MUSCLE SPASMS [None]
  - PAIN IN EXTREMITY [None]
